FAERS Safety Report 15913214 (Version 2)
Quarter: 2019Q1

REPORT INFORMATION
  Report Type: Spontaneous
  Country: IR (occurrence: IR)
  Receive Date: 20190204
  Receipt Date: 20190211
  Transmission Date: 20190417
  Serious: Yes (Death)
  Sender: FDA-Public Use
  Company Number: PHHY2019IR025437

PATIENT
  Age: 70 Year
  Sex: Female

DRUGS (2)
  1. OXALIPLATIN. [Suspect]
     Active Substance: OXALIPLATIN
     Indication: METASTATIC NEOPLASM
     Dosage: UNK
     Route: 065
  2. ZARZIO [Suspect]
     Active Substance: FILGRASTIM
     Indication: METASTATIC NEOPLASM
     Dosage: UNK
     Route: 065

REACTIONS (5)
  - Rash [Unknown]
  - Myalgia [Unknown]
  - Metastatic neoplasm [Fatal]
  - Pyrexia [Fatal]
  - Erythema [Unknown]
